FAERS Safety Report 8756221 (Version 3)
Quarter: 2012Q4

REPORT INFORMATION
  Report Type: Report from Study
  Country: JP (occurrence: JP)
  Receive Date: 20120828
  Receipt Date: 20121010
  Transmission Date: 20130627
  Serious: Yes (Hospitalization, Other)
  Sender: FDA-Public Use
  Company Number: PHHY2012JP065543

PATIENT
  Age: 16 Year
  Sex: Male

DRUGS (7)
  1. LEPONEX / CLOZARIL [Suspect]
     Indication: SCHIZOPHRENIA
     Dosage: 300 mg, daily
     Route: 048
     Dates: start: 20120215, end: 20120624
  2. LEPONEX / CLOZARIL [Suspect]
     Dosage: 250 mg, daily
     Route: 048
     Dates: start: 20120625, end: 20120701
  3. LEPONEX / CLOZARIL [Suspect]
     Dosage: 300 mg, daily
     Route: 048
     Dates: start: 20120702
  4. LEPONEX / CLOZARIL [Suspect]
     Dosage: 300 mg, UNK
     Dates: start: 20120824
  5. LENDORMIN [Concomitant]
     Indication: INSOMNIA
     Dosage: 0.25 mg, UNK
     Route: 048
     Dates: start: 20120216
  6. LIMAS [Concomitant]
     Dosage: 400 mg, UNK
     Route: 048
     Dates: start: 20120412, end: 20120624
  7. LAMICTAL [Concomitant]
     Indication: CONVULSION
     Dosage: 100 mg, daily

REACTIONS (4)
  - Convulsion [Recovered/Resolved]
  - Depressed level of consciousness [Recovered/Resolved]
  - Electroencephalogram abnormal [Recovered/Resolved]
  - Fall [Recovered/Resolved]
